FAERS Safety Report 6823471-X (Version None)
Quarter: 2010Q3

REPORT INFORMATION
  Report Type: 
  Country: None (occurrence: None)
  Receive Date: 20100708
  Receipt Date: 20100630
  Transmission Date: 20110219
  Serious: Yes (Hospitalization, Other)
  Sender: FDA-Public Use
  Company Number: PHHO2010US09887

PATIENT
  Sex: Male
  Weight: 88 kg

DRUGS (13)
  1. AFINITOR [Suspect]
     Indication: COLORECTAL CANCER
     Dosage: 5MG EVERY OTHER DAY
     Dates: start: 20100618, end: 20100622
  2. AVASTIN [Suspect]
     Indication: COLORECTAL CANCER
     Dosage: UNK
     Dates: start: 20100618, end: 20100622
  3. FOLFOX-4 [Concomitant]
  4. AMBIEN [Concomitant]
  5. ATIVAN [Concomitant]
  6. COMPAZINE [Concomitant]
  7. DEPAKOTE [Concomitant]
  8. IBUPROFEN [Concomitant]
  9. ZOFRAN [Concomitant]
  10. OXYCODONE HCL [Concomitant]
  11. PAXIL [Concomitant]
  12. PERCOCET [Concomitant]
  13. REGLAN [Concomitant]

REACTIONS (8)
  - BODY TEMPERATURE INCREASED [None]
  - DEHYDRATION [None]
  - ERYTHEMA [None]
  - FISTULA [None]
  - MUSCULOSKELETAL PAIN [None]
  - NAUSEA [None]
  - PURULENT DISCHARGE [None]
  - SWELLING [None]
